FAERS Safety Report 15531319 (Version 1)
Quarter: 2018Q4

REPORT INFORMATION
  Report Type: Report from Study
  Country: DE (occurrence: DE)
  Receive Date: 20181019
  Receipt Date: 20181019
  Transmission Date: 20190205
  Serious: Yes (Death, Hospitalization, Congenital Anomaly, Other)
  Sender: FDA-Public Use
  Company Number: DE-ACCORD-073222

PATIENT
  Age: 52 Year
  Sex: Female
  Weight: 66 kg

DRUGS (18)
  1. FOLINIC ACID [Suspect]
     Active Substance: LEUCOVORIN
     Indication: PRODUCT USED FOR UNKNOWN INDICATION
     Dosage: 335 MG FROM 28-APR-2015 AND 26-MAY-2015, 225 MG 13-AUG-2015 TO 08-OCT-2015
     Route: 042
     Dates: start: 20150626, end: 20150730
  2. FOLINIC ACID [Suspect]
     Active Substance: LEUCOVORIN
     Route: 042
     Dates: start: 20151210, end: 20160121
  3. FOLINIC ACID [Suspect]
     Active Substance: LEUCOVORIN
     Route: 042
     Dates: start: 20160908, end: 20160908
  4. IRINOTECAN [Suspect]
     Active Substance: IRINOTECAN
     Route: 042
     Dates: start: 20150626, end: 20150626
  5. FLUOROURACIL. [Suspect]
     Active Substance: FLUOROURACIL
     Indication: PRODUCT USED FOR UNKNOWN INDICATION
     Dosage: 600 MG ON 26-NOV-2015
     Route: 040
     Dates: start: 20160428, end: 20160428
  6. GRANOCYTE [Concomitant]
     Active Substance: LENOGRASTIM
     Indication: NEUTROPENIA
     Route: 058
     Dates: start: 20150615, end: 20150810
  7. BEVACIZUMAB. [Suspect]
     Active Substance: BEVACIZUMAB
     Route: 042
     Dates: start: 20160630
  8. OXALIPLATIN. [Suspect]
     Active Substance: OXALIPLATIN
     Route: 042
     Dates: start: 20150814, end: 20150925
  9. BEVACIZUMAB. [Suspect]
     Active Substance: BEVACIZUMAB
     Indication: COLORECTAL CANCER
     Dosage: 280 MG ON 07-JAN-2016
     Route: 042
     Dates: start: 20150428
  10. BEVACIZUMAB. [Suspect]
     Active Substance: BEVACIZUMAB
     Route: 042
     Dates: start: 20160107
  11. ENOXAPARIN [Concomitant]
     Active Substance: ENOXAPARIN
     Indication: THROMBOSIS PROPHYLAXIS
     Route: 058
     Dates: start: 20150427
  12. FOLINIC ACID [Suspect]
     Active Substance: LEUCOVORIN
     Route: 042
     Dates: start: 20150813, end: 20151008
  13. BEVACIZUMAB. [Suspect]
     Active Substance: BEVACIZUMAB
     Route: 042
     Dates: start: 20160908
  14. FOLINIC ACID [Suspect]
     Active Substance: LEUCOVORIN
     Route: 042
     Dates: start: 20151126, end: 20151126
  15. FOLINIC ACID [Suspect]
     Active Substance: LEUCOVORIN
     Dosage: DOSAGES BETWEEN 255 MG AND 645 MG
     Route: 042
     Dates: end: 20160630
  16. FOLINIC ACID [Suspect]
     Active Substance: LEUCOVORIN
     Route: 042
     Dates: start: 20150608, end: 20150608
  17. OXALIPLATIN. [Suspect]
     Active Substance: OXALIPLATIN
     Indication: COLORECTAL CANCER
     Dosage: 110 MG FROM 14-AUG-2015 TO 25-SEP-2015
     Route: 042
     Dates: start: 20150627, end: 20150731
  18. IRINOTECAN [Suspect]
     Active Substance: IRINOTECAN
     Indication: PRODUCT USED FOR UNKNOWN INDICATION
     Dosage: 210 MG FORM  13-AUG-2015 TO  08-OCT-2015, 275 MG FORM 28-APR-2015 TO 26-MAY-2015
     Route: 042
     Dates: start: 20150713, end: 20150730

REACTIONS (9)
  - Vomiting [Recovered/Resolved]
  - Mucosal inflammation [Recovered/Resolved]
  - Cystitis radiation [Recovering/Resolving]
  - Metastases to central nervous system [Fatal]
  - Inappropriate schedule of product administration [Unknown]
  - Proteinuria [Recovered/Resolved]
  - Cystitis haemorrhagic [Recovering/Resolving]
  - Metastases to meninges [Unknown]
  - Bladder tamponade [Unknown]

NARRATIVE: CASE EVENT DATE: 20160107
